FAERS Safety Report 25664554 (Version 3)
Quarter: 2025Q3

REPORT INFORMATION
  Report Type: Spontaneous
  Country: EU (occurrence: EU)
  Receive Date: 20250811
  Receipt Date: 20250903
  Transmission Date: 20251020
  Serious: Yes (Hospitalization, Other)
  Sender: RHYTHM PHARMACEUTICALS
  Company Number: EU-RHYTHM PHARMACEUTICALS, INC.-2025RHM000296

PATIENT
  Age: 50 Year
  Sex: Female
  Weight: 116 kg

DRUGS (13)
  1. IMCIVREE [Suspect]
     Active Substance: SETMELANOTIDE
     Indication: Obesity
     Dosage: 0.5 MILLIGRAM, QD
     Route: 058
     Dates: start: 20250520, end: 202506
  2. IMCIVREE [Suspect]
     Active Substance: SETMELANOTIDE
     Dosage: 1 MILLIGRAM, QD
     Route: 058
     Dates: start: 20250527
  3. IMCIVREE [Suspect]
     Active Substance: SETMELANOTIDE
     Dosage: 1.5 MILLIGRAM, QD
     Route: 058
     Dates: start: 20250603, end: 20250617
  4. IMCIVREE [Suspect]
     Active Substance: SETMELANOTIDE
     Dosage: 3 MILLIGRAM, QD
     Route: 058
     Dates: start: 20250617, end: 20250718
  5. IMCIVREE [Suspect]
     Active Substance: SETMELANOTIDE
     Dosage: 2.5 MILLIGRAM, QD
     Route: 058
     Dates: start: 20250719, end: 20250720
  6. IMCIVREE [Suspect]
     Active Substance: SETMELANOTIDE
     Dosage: 1 MILLIGRAM, QD
     Route: 058
     Dates: start: 20250724
  7. IMCIVREE [Suspect]
     Active Substance: SETMELANOTIDE
     Dosage: 2 MILLIGRAM, QD
     Route: 058
     Dates: start: 20250816
  8. LEVOTHYROXINE [Concomitant]
     Active Substance: LEVOTHYROXINE
     Indication: Hypothyroidism
     Route: 048
     Dates: start: 2019
  9. HYDROCORTISONE [Concomitant]
     Active Substance: HYDROCORTISONE
     Indication: Adrenocorticotropic hormone deficiency
     Route: 048
     Dates: start: 2019
  10. HYDROCORTISONE [Concomitant]
     Active Substance: HYDROCORTISONE
  11. MINIRIN [Concomitant]
     Active Substance: DESMOPRESSIN ACETATE
     Indication: Diabetes insipidus
     Route: 048
     Dates: start: 2019
  12. TRIMEPRAZINE [Concomitant]
     Active Substance: TRIMEPRAZINE
     Indication: Sleep disorder
     Dosage: 5 MILLIGRAM, EVENING
  13. AGOMELATINE [Concomitant]
     Active Substance: AGOMELATINE
     Indication: Sleep disorder
     Dosage: 2 DOSAGE FORM, QD (2 IN THE EVENING)

REACTIONS (6)
  - Adrenal insufficiency [Recovering/Resolving]
  - Nausea [Recovering/Resolving]
  - Asthenia [Recovering/Resolving]
  - Vomiting [Recovering/Resolving]
  - Off label use [Not Recovered/Not Resolved]
  - Cough [Recovering/Resolving]

NARRATIVE: CASE EVENT DATE: 20250520
